FAERS Safety Report 9726377 (Version 1)
Quarter: 2013Q4

REPORT INFORMATION
  Report Type: Spontaneous
  Country: IN (occurrence: IN)
  Receive Date: 20131203
  Receipt Date: 20131203
  Transmission Date: 20140711
  Serious: Yes (Life-Threatening, Hospitalization)
  Sender: FDA-Public Use
  Company Number: IN-ASTRAZENECA-2013SE87965

PATIENT
  Age: 43 Year
  Sex: Male

DRUGS (5)
  1. BRILINTA [Suspect]
     Indication: CARDIOVASCULAR EVENT PROPHYLAXIS
     Route: 048
  2. BRILINTA [Suspect]
     Indication: CARDIOVASCULAR EVENT PROPHYLAXIS
     Route: 048
     Dates: start: 20131127, end: 20131129
  3. ECOSPRIN [Concomitant]
  4. CARDACE [Concomitant]
  5. METOPROLOL [Concomitant]

REACTIONS (2)
  - Thrombosis in device [Unknown]
  - Atrial fibrillation [Unknown]
